FAERS Safety Report 21338124 (Version 3)
Quarter: 2022Q4

REPORT INFORMATION
  Report Type: Spontaneous
  Country: US (occurrence: US)
  Receive Date: 20220915
  Receipt Date: 20221020
  Transmission Date: 20230113
  Serious: Yes (Other)
  Sender: FDA-Public Use
  Company Number: US-PFIZER INC-202201161948

PATIENT
  Sex: Female

DRUGS (2)
  1. SOMAVERT [Suspect]
     Active Substance: PEGVISOMANT
     Indication: Brain neoplasm
     Dosage: UNK
  2. PASIREOTIDE [Concomitant]
     Active Substance: PASIREOTIDE
     Indication: Pituitary tumour
     Dosage: UNK, MONTHLY (ONCE MONTHLY INJECTION)
     Dates: start: 2011

REACTIONS (7)
  - Clostridium difficile infection [Unknown]
  - Cataract [Unknown]
  - Shoulder operation [Unknown]
  - Diabetes mellitus [Unknown]
  - Breast cancer [Unknown]
  - Haemorrhage [Unknown]
  - Off label use [Unknown]
